FAERS Safety Report 5726042-1 (Version None)
Quarter: 2008Q2

REPORT INFORMATION
  Report Type: 
  Country: None (occurrence: None)
  Receive Date: 20080501
  Receipt Date: 20080501
  Transmission Date: 20081010
  Serious: Yes (Other)
  Sender: FDA-Public Use
  Company Number: None

PATIENT
  Age: 59 Year
  Sex: Male
  Weight: 79.3795 kg

DRUGS (2)
  1. LYRICA [Suspect]
     Indication: PAIN MANAGEMENT
     Dosage: 1X 100 MG TABLET  3X/DAY  PO
     Route: 048
     Dates: start: 20080410, end: 20080425
  2. LYRICA [Suspect]
     Indication: POST HERPETIC NEURALGIA
     Dosage: 1X 100 MG TABLET  3X/DAY  PO
     Route: 048
     Dates: start: 20080410, end: 20080425

REACTIONS (11)
  - DIARRHOEA [None]
  - DISORIENTATION [None]
  - DIZZINESS [None]
  - EUPHORIC MOOD [None]
  - EXERCISE TOLERANCE DECREASED [None]
  - FLUID RETENTION [None]
  - GAIT DISTURBANCE [None]
  - ILLUSION [None]
  - INSOMNIA [None]
  - LETHARGY [None]
  - WEIGHT INCREASED [None]
